FAERS Safety Report 9155980 (Version 1)
Quarter: 2013Q1

REPORT INFORMATION
  Report Type: Spontaneous
  Country: JP (occurrence: JP)
  Receive Date: 20130311
  Receipt Date: 20130311
  Transmission Date: 20140127
  Serious: Yes (Other)
  Sender: FDA-Public Use
  Company Number: JP-MYLANLABS-2013S1004599

PATIENT
  Age: 48 Year
  Sex: Male

DRUGS (5)
  1. CARBOPLATIN [Suspect]
     Indication: METASTASES TO LIVER
     Dosage: AUC 5
     Route: 065
  2. PEMETREXED [Suspect]
     Indication: METASTASES TO LIVER
     Dosage: 500 MG/M2
     Route: 065
  3. BEVACIZUMAB [Suspect]
     Indication: METASTASES TO LIVER
     Dosage: 15 MG/KG
     Route: 065
  4. METHYLPREDNISOLONE [Concomitant]
     Indication: INTERSTITIAL LUNG DISEASE
     Dosage: 500 MG/DAY
     Route: 065
  5. PREDNISOLONE [Concomitant]
     Indication: INTERSTITIAL LUNG DISEASE
     Dosage: 30 MG/DAY; THEN TAPERED
     Route: 065

REACTIONS (2)
  - Oesophageal varices haemorrhage [Recovering/Resolving]
  - Portal hypertension [Recovering/Resolving]
